FAERS Safety Report 7589393-4 (Version None)
Quarter: 2011Q3

REPORT INFORMATION
  Report Type: 
  Country: None (occurrence: None)
  Receive Date: 20110705
  Receipt Date: 20110623
  Transmission Date: 20111222
  Serious: Yes (Hospitalization, Other)
  Sender: FDA-Public Use
  Company Number: FR-ROCHE-765966

PATIENT
  Sex: Female
  Weight: 36.1 kg

DRUGS (26)
  1. BEVACIZUMAB [Suspect]
     Dosage: FREQ: 1X/DAY
     Route: 042
     Dates: start: 20110616
  2. IFOSFAMIDE [Suspect]
     Indication: SARCOMA METASTATIC
     Dosage: FREQUENCY: DAY 1- DAY 2. DOSAGE FORM: 3 GR/M2.LAST DOSE PRIOR TO SAE: 17 JUNE 2011
     Route: 042
     Dates: start: 20110302
  3. CLONAZEPAM [Concomitant]
     Dosage: TDD: 12 DROPS
     Dates: start: 20110305
  4. DACTINOMYCIN [Suspect]
     Dosage: FREQ: 1 DAY
     Route: 042
     Dates: start: 20110616
  5. TRANXENE [Concomitant]
     Dates: start: 20110312, end: 20110312
  6. ZOVIRAX [Concomitant]
     Dates: start: 20110314
  7. VINCRISTINE [Suspect]
     Dosage: FREQ: 1X/DAY
     Route: 042
     Dates: start: 20110616
  8. DACTINOMYCIN [Suspect]
     Indication: SARCOMA METASTATIC
     Dosage: DOSAGE FORM: 1.5MG/M2. LAST DOSE PRIOR TO SAE:16 JUNE 2011
     Route: 042
     Dates: start: 20110302
  9. DOXORUBICIN HCL [Suspect]
     Indication: SARCOMA METASTATIC
     Dosage: FREQUENCY: DAY 1 AND DAY 2. DOSAGE FORM: 30 MG/M2.
     Route: 042
     Dates: start: 20110302
  10. PREDNISOLONE [Concomitant]
     Dates: start: 20110309, end: 20110315
  11. NORDETTE-21 [Concomitant]
     Dosage: TOTAL DAILY DOSE: 1 CP/DAY
     Dates: start: 20110518
  12. FOLEX [Concomitant]
     Dosage: TOTAL DAILY DOSE: 4 SACHETS
     Dates: start: 20110302
  13. LOVENOX [Concomitant]
     Dates: start: 20110301
  14. ZOLOFT [Concomitant]
     Dates: start: 20110616
  15. ACETAMINOPHEN [Concomitant]
     Dosage: TDD: UK
     Dates: start: 20110309
  16. FORLAX [Concomitant]
     Dates: start: 20110302
  17. NORDETTE-21 [Concomitant]
     Dosage: TOTAL DAILY DOSE: 1 CP/DAY
     Dates: start: 20110302
  18. TRAMADOL HCL [Concomitant]
     Dates: start: 20110309, end: 20110313
  19. ORANOR [Concomitant]
     Dosage: TDD: 4 DROPSX 6/ DAY
     Dates: start: 20110312, end: 20110402
  20. BEVACIZUMAB [Suspect]
     Indication: SARCOMA METASTATIC
     Dosage: FREQUENCY: DAY 1. DOSAGE FORM: 7.5 MG/KG.LAST DOSE PRIOR TO SAE: 16 JUNE 2011
     Route: 042
     Dates: start: 20110302
  21. IFOSFAMIDE [Suspect]
     Dosage: FREQ; 2 DAYS
     Route: 042
     Dates: start: 20110616
  22. FORLAX [Concomitant]
     Dates: start: 20110305
  23. VINCRISTINE [Suspect]
     Indication: SARCOMA METASTATIC
     Dosage: C1, C2, C3. FORM: 1.5 MG/M2.LAST DOSE PRIOR TO SAE:16 JUNE 2011
     Route: 042
     Dates: start: 20110302
  24. FORLAX [Concomitant]
     Dates: start: 20110312
  25. NORDETTE-21 [Concomitant]
     Dates: start: 20110303
  26. NEURONTIN [Concomitant]
     Dates: start: 20110423

REACTIONS (5)
  - WEIGHT DECREASED [None]
  - MUCOSAL INFLAMMATION [None]
  - FEBRILE NEUTROPENIA [None]
  - FEBRILE BONE MARROW APLASIA [None]
  - VOMITING [None]
